FAERS Safety Report 5086226-5 (Version None)
Quarter: 2006Q3

REPORT INFORMATION
  Report Type: 
  Country: None (occurrence: None)
  Receive Date: 20060823
  Receipt Date: 20060524
  Transmission Date: 20061208
  Serious: Yes (Hospitalization)
  Sender: FDA-Public Use
  Company Number: CH-BRACCO-BRO-010174

PATIENT
  Age: 66 Year
  Sex: Female

DRUGS (4)
  1. IOPAMIRO [Suspect]
     Route: 037
     Dates: start: 20060412, end: 20060412
  2. IOPAMIRO [Suspect]
     Indication: X-RAY
     Route: 037
     Dates: start: 20060412, end: 20060412
  3. IOPAMIRO [Suspect]
     Route: 037
     Dates: start: 20060412, end: 20060412
  4. IOPAMIRO [Suspect]
     Route: 037
     Dates: start: 20060412, end: 20060412

REACTIONS (6)
  - BRAIN OEDEMA [None]
  - DIARRHOEA [None]
  - GRAND MAL CONVULSION [None]
  - HYPONATRAEMIA [None]
  - NAUSEA [None]
  - VOMITING [None]
